FAERS Safety Report 5278926-9 (Version None)
Quarter: 2007Q1

REPORT INFORMATION
  Report Type: 
  Country: None (occurrence: None)
  Receive Date: 20070328
  Receipt Date: 20070315
  Transmission Date: 20070707
  Serious: Yes (Disabling, Other)
  Sender: FDA-Public Use
  Company Number: PHEH2007US02704

PATIENT
  Age: 54 Year
  Sex: Female
  Weight: 64 kg

DRUGS (3)
  1. GLEEVEC [Suspect]
     Indication: CHRONIC MYELOID LEUKAEMIA
     Dosage: 400 MG, QD
     Route: 048
     Dates: start: 20041122, end: 20050720
  2. ACTONEL [Concomitant]
     Indication: OSTEOPOROSIS
     Dosage: 35 MG, QW
     Route: 048
  3. CALCIUM [Concomitant]
     Indication: OSTEOPOROSIS
     Route: 048

REACTIONS (16)
  - ANAEMIA [None]
  - ARTHRALGIA [None]
  - BLADDER CANCER [None]
  - BLADDER NEOPLASM SURGERY [None]
  - DECREASED APPETITE [None]
  - DIARRHOEA [None]
  - DRY MOUTH [None]
  - GASTROINTESTINAL DISORDER [None]
  - GRAVITATIONAL OEDEMA [None]
  - HAEMATURIA [None]
  - JOINT SWELLING [None]
  - OSTEONECROSIS [None]
  - OSTEOPENIA [None]
  - PERIORBITAL OEDEMA [None]
  - WRIST FRACTURE [None]
  - WRIST SURGERY [None]
